FAERS Safety Report 24845464 (Version 2)
Quarter: 2025Q1

REPORT INFORMATION
  Report Type: Spontaneous
  Country: GB (occurrence: GB)
  Receive Date: 20250115
  Receipt Date: 20250123
  Transmission Date: 20250408
  Serious: Yes (Death, Other)
  Sender: PFIZER
  Company Number: None

PATIENT
  Age: 64 Year
  Sex: Male
  Weight: 66 kg

DRUGS (26)
  1. BEVACIZUMAB [Suspect]
     Active Substance: BEVACIZUMAB
     Indication: Palliative care
     Dates: start: 20241004
  2. BEVACIZUMAB [Suspect]
     Active Substance: BEVACIZUMAB
     Indication: Non-small cell lung cancer metastatic
     Dates: start: 20241025
  3. BEVACIZUMAB [Suspect]
     Active Substance: BEVACIZUMAB
     Dates: start: 20241115
  4. BEVACIZUMAB [Suspect]
     Active Substance: BEVACIZUMAB
     Dates: start: 20241206
  5. CARBOPLATIN [Concomitant]
     Active Substance: CARBOPLATIN
     Indication: Palliative care
     Dates: start: 20241004
  6. CARBOPLATIN [Concomitant]
     Active Substance: CARBOPLATIN
     Indication: Non-small cell lung cancer metastatic
     Dates: start: 20241025
  7. CARBOPLATIN [Concomitant]
     Active Substance: CARBOPLATIN
     Dates: start: 20241115
  8. CARBOPLATIN [Concomitant]
     Active Substance: CARBOPLATIN
     Dates: start: 20241206
  9. PACLITAXEL [Concomitant]
     Active Substance: PACLITAXEL
     Indication: Palliative care
     Dates: start: 20241004
  10. PACLITAXEL [Concomitant]
     Active Substance: PACLITAXEL
     Indication: Non-small cell lung cancer metastatic
     Dates: start: 20241025
  11. PACLITAXEL [Concomitant]
     Active Substance: PACLITAXEL
     Dates: start: 20241115
  12. PACLITAXEL [Concomitant]
     Active Substance: PACLITAXEL
     Dates: start: 20241206
  13. ATEZOLIZUMAB [Concomitant]
     Active Substance: ATEZOLIZUMAB
     Indication: Palliative care
     Dates: start: 20241004
  14. ATEZOLIZUMAB [Concomitant]
     Active Substance: ATEZOLIZUMAB
     Indication: Non-small cell lung cancer metastatic
     Dates: start: 20241025
  15. ATEZOLIZUMAB [Concomitant]
     Active Substance: ATEZOLIZUMAB
     Dates: start: 20241115
  16. ATEZOLIZUMAB [Concomitant]
     Active Substance: ATEZOLIZUMAB
     Dates: start: 20241206
  17. CETIRIZINE [Concomitant]
     Active Substance: CETIRIZINE HYDROCHLORIDE
  18. GRANISETRON [Concomitant]
     Active Substance: GRANISETRON
     Route: 042
  19. COCODAMOL [Concomitant]
     Active Substance: ACETAMINOPHEN\CODEINE PHOSPHATE
  20. AMLODIPINE [Concomitant]
     Active Substance: AMLODIPINE BESYLATE
     Dosage: 5MG OD
  21. DEXAMETHASONE [Concomitant]
     Active Substance: DEXAMETHASONE
     Route: 048
  22. DEXAMETHASONE [Concomitant]
     Active Substance: DEXAMETHASONE
     Route: 042
  23. ONDANSETRON [Concomitant]
     Active Substance: ONDANSETRON
     Dosage: 8MG BD FOR 2 DAYS POST TREATMENT
     Route: 048
  24. METOCLOPRAMIDE [Concomitant]
     Active Substance: METOCLOPRAMIDE
     Route: 048
  25. DIPROBASE [CETOMACROGOL;CETOSTEARYL ALCOHOL;PARAFFIN, LIQUID;WHITE SOF [Concomitant]
  26. CHLORPHENIRAMINE MALEATE [Concomitant]
     Active Substance: CHLORPHENIRAMINE MALEATE
     Route: 042

REACTIONS (16)
  - Intestinal perforation [Fatal]
  - Neoplasm progression [Fatal]
  - Metabolic acidosis [Unknown]
  - Blood pressure decreased [Unknown]
  - Unresponsive to stimuli [Unknown]
  - Agonal respiration [Unknown]
  - Neutropenia [Unknown]
  - Tachycardia [Unknown]
  - Haemoptysis [Unknown]
  - Cardiac output decreased [Unknown]
  - Abdominal pain [Unknown]
  - Pancreatitis [Unknown]
  - Somnolence [Unknown]
  - Hypertension [Unknown]
  - Constipation [Unknown]
  - Hypophagia [Unknown]

NARRATIVE: CASE EVENT DATE: 20240101
